FAERS Safety Report 19053747 (Version 2)
Quarter: 2021Q2

REPORT INFORMATION
  Report Type: Spontaneous
  Country: DE (occurrence: DE)
  Receive Date: 20210324
  Receipt Date: 20210409
  Transmission Date: 20210717
  Serious: Yes (Other)
  Sender: FDA-Public Use
  Company Number: DE-BAYER-2021-093273

PATIENT
  Age: 41 Year
  Sex: Female
  Weight: 85 kg

DRUGS (2)
  1. ASTRAZENECA COVID?19 VACCINE [Suspect]
     Active Substance: AZD-1222
     Indication: COVID-19 IMMUNISATION
  2. MIRENA [Suspect]
     Active Substance: LEVONORGESTREL
     Indication: CONTRACEPTION
     Dosage: 20 ?G PER DAY, CONTINUOUSLY
     Route: 015
     Dates: start: 20180118

REACTIONS (6)
  - Pregnancy with contraceptive device [Recovered/Resolved]
  - Venous thrombosis in pregnancy [None]
  - Drug ineffective [None]
  - Abortion spontaneous [Recovered/Resolved]
  - Cervix haematoma uterine [None]
  - Embedded device [Not Recovered/Not Resolved]

NARRATIVE: CASE EVENT DATE: 202103
